FAERS Safety Report 9688390 (Version 4)
Quarter: 2014Q1

REPORT INFORMATION
  Report Type: Report from Study
  Country: US (occurrence: US)
  Receive Date: 20131114
  Receipt Date: 20140207
  Transmission Date: 20141002
  Serious: Yes (Hospitalization)
  Sender: FDA-Public Use
  Company Number: US-JNJFOC-20130707493

PATIENT
  Age: 31 Year
  Sex: Male
  Weight: 96 kg

DRUGS (23)
  1. PALIPERIDONE PALMITATE [Suspect]
     Indication: SCHIZOPHRENIA, PARANOID TYPE
     Dosage: 41637
     Route: 030
     Dates: start: 20130408, end: 20130408
  2. PALIPERIDONE PALMITATE [Suspect]
     Indication: SCHIZOPHRENIA, PARANOID TYPE
     Route: 030
  3. INVEGA [Concomitant]
     Indication: SCHIZOPHRENIA, PARANOID TYPE
     Route: 048
     Dates: start: 20130403
  4. AMBIEN [Concomitant]
     Indication: INSOMNIA
     Route: 048
     Dates: start: 20130401, end: 20130404
  5. AMBIEN [Concomitant]
     Indication: INSOMNIA
     Route: 048
     Dates: start: 20130406
  6. NICOTINE GUM [Concomitant]
     Indication: NICOTINE DEPENDENCE
     Route: 048
     Dates: start: 20130403, end: 20130403
  7. NICOTINE GUM [Concomitant]
     Indication: NICOTINE DEPENDENCE
     Route: 048
     Dates: start: 20130410
  8. NICOTINE GUM [Concomitant]
     Indication: NICOTINE DEPENDENCE
     Route: 048
     Dates: start: 20130401, end: 20130401
  9. NICOTINE GUM [Concomitant]
     Indication: NICOTINE DEPENDENCE
     Route: 048
     Dates: start: 20130402, end: 20130402
  10. NICOTINE GUM [Concomitant]
     Indication: SMOKING CESSATION THERAPY
     Route: 048
     Dates: start: 20130410
  11. NICOTINE GUM [Concomitant]
     Indication: SMOKING CESSATION THERAPY
     Route: 048
     Dates: start: 20130402, end: 20130402
  12. NICOTINE GUM [Concomitant]
     Indication: SMOKING CESSATION THERAPY
     Route: 048
     Dates: start: 20130401, end: 20130401
  13. NICOTINE GUM [Concomitant]
     Indication: SMOKING CESSATION THERAPY
     Route: 048
     Dates: start: 20130403, end: 20130403
  14. ZOLPIDEM [Concomitant]
     Indication: INSOMNIA
     Route: 048
     Dates: start: 20130409, end: 20130409
  15. ZOLPIDEM [Concomitant]
     Indication: INSOMNIA
     Route: 048
     Dates: start: 20130401, end: 20130401
  16. ZOLPIDEM [Concomitant]
     Indication: INSOMNIA
     Route: 048
     Dates: start: 20130413, end: 20130414
  17. BENZATROPINE MESILATE [Concomitant]
     Indication: PROPHYLAXIS
     Route: 065
     Dates: start: 20130409
  18. NICORELIEF [Concomitant]
     Indication: NICOTINE DEPENDENCE
     Route: 048
     Dates: start: 20130412, end: 20130414
  19. NICORELIEF [Concomitant]
     Indication: NICOTINE DEPENDENCE
     Route: 048
     Dates: start: 20130401, end: 20130401
  20. NICORELIEF [Concomitant]
     Indication: NICOTINE DEPENDENCE
     Route: 048
     Dates: start: 20130402, end: 20130402
  21. NICORELIEF [Concomitant]
     Indication: NICOTINE DEPENDENCE
     Route: 048
     Dates: start: 20130403, end: 20130403
  22. NICORELIEF [Concomitant]
     Indication: NICOTINE DEPENDENCE
     Route: 048
     Dates: start: 20130406, end: 20130406
  23. NICORELIEF [Concomitant]
     Indication: NICOTINE DEPENDENCE
     Route: 048
     Dates: start: 20130409, end: 20130410

REACTIONS (2)
  - Psychotic disorder [Recovered/Resolved]
  - Delusion [Recovered/Resolved]
